FAERS Safety Report 24280636 (Version 1)
Quarter: 2024Q3

REPORT INFORMATION
  Report Type: Spontaneous
  Country: GB (occurrence: GB)
  Receive Date: 20240904
  Receipt Date: 20240904
  Transmission Date: 20241016
  Serious: Yes (Other)
  Sender: TEVA
  Company Number: None

PATIENT
  Age: 46 Year
  Sex: Female
  Weight: 60 kg

DRUGS (1)
  1. MIRTAZAPINE [Suspect]
     Active Substance: MIRTAZAPINE
     Indication: Anxiety
     Dosage: AT NIGHT
     Route: 048

REACTIONS (14)
  - Blood glucose increased [Not Recovered/Not Resolved]
  - Tremor [Recovered/Resolved]
  - Muscle twitching [Recovering/Resolving]
  - Low density lipoprotein increased [Not Recovered/Not Resolved]
  - Anxiety [Recovering/Resolving]
  - Leukopenia [Recovering/Resolving]
  - Insomnia [Recovering/Resolving]
  - Withdrawal syndrome [Recovering/Resolving]
  - Pruritus [Recovering/Resolving]
  - Fatigue [Recovering/Resolving]
  - Diarrhoea [Recovering/Resolving]
  - Skin burning sensation [Recovering/Resolving]
  - Vision blurred [Recovering/Resolving]
  - Temperature intolerance [Recovering/Resolving]
